FAERS Safety Report 22127497 (Version 1)
Quarter: 2023Q1

REPORT INFORMATION
  Report Type: Spontaneous
  Country: JP (occurrence: JP)
  Receive Date: 20230322
  Receipt Date: 20230322
  Transmission Date: 20230418
  Serious: Yes (Hospitalization)
  Sender: FDA-Public Use
  Company Number: JP-CHUGAI-2023009701

PATIENT
  Age: 9 Decade
  Sex: Male

DRUGS (2)
  1. HEMLIBRA [Suspect]
     Active Substance: EMICIZUMAB-KXWH
     Indication: Haemophilia A without inhibitors
     Dosage: 390 MILLIGRAM, ONCE/4WEEKS
     Route: 058
     Dates: start: 20211223
  2. HEMLIBRA [Suspect]
     Active Substance: EMICIZUMAB-KXWH
     Dosage: UNK UNK, ONCE/4WEEKS
     Route: 058
     Dates: start: 20230316

REACTIONS (1)
  - Cardiac failure [Recovering/Resolving]
